FAERS Safety Report 21005299 (Version 1)
Quarter: 2022Q2

REPORT INFORMATION
  Report Type: Spontaneous
  Country: GB (occurrence: GB)
  Receive Date: 20220624
  Receipt Date: 20220624
  Transmission Date: 20220721
  Serious: Yes (Other)
  Sender: FDA-Public Use
  Company Number: GB-drreddys-SPO/UKI/22/0150775

PATIENT
  Sex: Male

DRUGS (1)
  1. AMLODIPINE [Suspect]
     Active Substance: AMLODIPINE BESYLATE
     Indication: Hypertension
     Dosage: UNIT DOSE: 10 MG, STRENGTH : 10 MG
     Route: 065

REACTIONS (4)
  - Prostate cancer [Unknown]
  - Loss of consciousness [Unknown]
  - Hot flush [Unknown]
  - Fatigue [Unknown]
